FAERS Safety Report 10222250 (Version 2)
Quarter: 2014Q2

REPORT INFORMATION
  Report Type: Spontaneous
  Country: US (occurrence: US)
  Receive Date: 20140606
  Receipt Date: 20140624
  Transmission Date: 20141212
  Serious: No
  Sender: FDA-Public Use
  Company Number: US-TEVA-484791USA

PATIENT
  Sex: Female
  Weight: 69.01 kg

DRUGS (10)
  1. PROAIR HFA [Suspect]
     Indication: ASTHMA
     Dates: start: 20140513
  2. PROAIR HFA [Suspect]
     Indication: CHRONIC OBSTRUCTIVE PULMONARY DISEASE
  3. METFORMIN [Concomitant]
     Indication: DIABETES MELLITUS
     Dosage: 2000 MILLIGRAM DAILY;
  4. GLYBURIDE [Concomitant]
     Indication: DIABETES MELLITUS
     Dosage: 5 MILLIGRAM DAILY;
  5. ATORVASTATIN [Concomitant]
     Indication: BLOOD CHOLESTEROL INCREASED
     Dosage: 40 MILLIGRAM DAILY;
  6. TRAZODONE [Concomitant]
     Indication: SLEEP DISORDER
     Dosage: 100 MILLIGRAM DAILY;
  7. ISOSORBIDE [Concomitant]
     Indication: ISCHAEMIC HEART DISEASE PROPHYLAXIS
     Dosage: 30 MILLIGRAM DAILY;
  8. METOCLOPRAMIDE [Concomitant]
     Indication: ISCHAEMIC HEART DISEASE PROPHYLAXIS
     Dosage: 200 MILLIGRAM DAILY;
  9. LISINOPRIL [Concomitant]
     Indication: HYPERTENSION
     Dosage: 40 MILLIGRAM DAILY;
  10. ACETAMINOPHEN [Concomitant]
     Indication: PAIN
     Dosage: 2500 MILLIGRAM DAILY;

REACTIONS (4)
  - Rash [Not Recovered/Not Resolved]
  - Pruritus [Not Recovered/Not Resolved]
  - Dyspnoea [Not Recovered/Not Resolved]
  - Bed bug infestation [Unknown]
